FAERS Safety Report 4863145-8 (Version None)
Quarter: 2005Q4

REPORT INFORMATION
  Report Type: 
  Country: None (occurrence: None)
  Receive Date: 20051201
  Receipt Date: 20050824
  Transmission Date: 20060501
  Serious: Yes (Other)
  Sender: FDA-Public Use
  Company Number: 2005-0008632

PATIENT
  Age: 49 Year
  Sex: Female

DRUGS (8)
  1. VIREAD [Suspect]
     Indication: HIV INFECTION
     Dosage: 300 MG, 1 IN 1 D, ORAL
     Route: 048
     Dates: start: 20010901, end: 20031001
  2. VIREAD [Suspect]
     Indication: HIV INFECTION
     Dosage: 300 MG, 1 IN 1 D, ORAL
     Route: 048
     Dates: start: 20040219, end: 20040923
  3. TRUVADA [Suspect]
     Indication: HIV INFECTION
     Dosage: 1 DOSAGE FORMS, 1 IN 1 D, ORAL
     Route: 048
     Dates: start: 20040923, end: 20050719
  4. REYATAZ [Concomitant]
  5. SUSTIVA [Concomitant]
  6. NORVIR [Concomitant]
  7. BACTRIM DS [Concomitant]
  8. VALIUM [Concomitant]

REACTIONS (1)
  - LACTIC ACIDOSIS [None]
